FAERS Safety Report 18041724 (Version 2)
Quarter: 2020Q4

REPORT INFORMATION
  Report Type: Spontaneous
  Country: FR (occurrence: FR)
  Receive Date: 20200720
  Receipt Date: 20201002
  Transmission Date: 20210113
  Serious: No
  Sender: FDA-Public Use
  Company Number: FR-UCBSA-2020027487

PATIENT
  Sex: Female

DRUGS (2)
  1. ARAVA [Concomitant]
     Active Substance: LEFLUNOMIDE
     Indication: RHEUMATOID ARTHRITIS
     Dosage: 20 MILLIGRAM
     Route: 048
     Dates: start: 20200704, end: 20200704
  2. CIMZIA [Suspect]
     Active Substance: CERTOLIZUMAB PEGOL
     Indication: RHEUMATOID ARTHRITIS
     Dosage: 400 MILLIGRAM, 1 TIME
     Route: 058
     Dates: start: 20200705, end: 20200705

REACTIONS (5)
  - Rash erythematous [Recovered/Resolved]
  - Paraesthesia [Recovered/Resolved]
  - Injection site reaction [Recovered/Resolved]
  - Pruritus [Recovered/Resolved]
  - Dyspnoea [Recovered/Resolved]

NARRATIVE: CASE EVENT DATE: 20200705
